FAERS Safety Report 16462084 (Version 4)
Quarter: 2019Q4

REPORT INFORMATION
  Report Type: Spontaneous
  Country: US (occurrence: US)
  Receive Date: 20190621
  Receipt Date: 20191101
  Transmission Date: 20200122
  Serious: Yes (Other)
  Sender: FDA-Public Use
  Company Number: US-ASTRAZENECA-2018SF65741

PATIENT
  Age: 36 Year
  Sex: Female
  Weight: 96.6 kg

DRUGS (29)
  1. PANTOPRAZOLE [Suspect]
     Active Substance: PANTOPRAZOLE
     Indication: GASTROOESOPHAGEAL REFLUX DISEASE
     Dosage: SODIUM DR
     Route: 065
     Dates: start: 2013, end: 2016
  2. DEXILANT [Suspect]
     Active Substance: DEXLANSOPRAZOLE
     Indication: GASTROOESOPHAGEAL REFLUX DISEASE
     Dosage: GENERIC
     Route: 065
     Dates: start: 2013, end: 2016
  3. FUROSEMIDE. [Concomitant]
     Active Substance: FUROSEMIDE
  4. FAMOTIDINE. [Concomitant]
     Active Substance: FAMOTIDINE
  5. PANTOPRAZOLE [Suspect]
     Active Substance: PANTOPRAZOLE
     Indication: GASTROOESOPHAGEAL REFLUX DISEASE
     Dosage: 40 MG DAILY
     Route: 065
  6. HUMALOG [Concomitant]
     Active Substance: INSULIN LISPRO
  7. NEXIUM [Suspect]
     Active Substance: ESOMEPRAZOLE MAGNESIUM
     Indication: GASTROOESOPHAGEAL REFLUX DISEASE
     Dosage: 40 MG DAILY GENERIC
     Route: 065
     Dates: start: 2013, end: 2016
  8. HYDRALAZINE [Concomitant]
     Active Substance: HYDRALAZINE HYDROCHLORIDE
  9. CARVEDILOL. [Concomitant]
     Active Substance: CARVEDILOL
  10. PEPTO-BISMOL [Concomitant]
     Active Substance: BISMUTH SUBSALICYLATE
     Dosage: 2 TEASPOON TWICE DAILY
     Dates: start: 2014, end: 2019
  11. NEXIUM [Suspect]
     Active Substance: ESOMEPRAZOLE MAGNESIUM
     Indication: GASTROOESOPHAGEAL REFLUX DISEASE
     Dosage: 10 MG TWICE A DAY
     Route: 048
  12. DEXILANT [Suspect]
     Active Substance: DEXLANSOPRAZOLE
     Indication: GASTROOESOPHAGEAL REFLUX DISEASE
     Route: 065
     Dates: start: 2013, end: 2016
  13. DOXYCYCLINE. [Concomitant]
     Active Substance: DOXYCYCLINE
  14. RANITIDINE. [Concomitant]
     Active Substance: RANITIDINE
     Dates: start: 2017
  15. NEXIUM [Suspect]
     Active Substance: ESOMEPRAZOLE MAGNESIUM
     Indication: DYSPEPSIA
     Dosage: 10 MG TWICE A DAY
     Route: 048
  16. NEXIUM [Suspect]
     Active Substance: ESOMEPRAZOLE MAGNESIUM
     Indication: DYSPEPSIA
     Dosage: 40 MG DAILY GENERIC
     Route: 065
     Dates: start: 2013, end: 2016
  17. CIPROFLOXACIN. [Concomitant]
     Active Substance: CIPROFLOXACIN
  18. AZITHROMYCIN ANHYDROUS. [Concomitant]
     Active Substance: AZITHROMYCIN ANHYDROUS
  19. LOSARTAN. [Concomitant]
     Active Substance: LOSARTAN
  20. AMLODIPINE [Concomitant]
     Active Substance: AMLODIPINE BESYLATE
  21. MYCOPHENOLATE [Concomitant]
     Active Substance: MYCOPHENOLIC ACID
     Dosage: 2 TEASPOON TWICE DAILY
     Dates: start: 2014, end: 2019
  22. LISINOPRIL. [Concomitant]
     Active Substance: LISINOPRIL
  23. ASPIRIN. [Concomitant]
     Active Substance: ASPIRIN
  24. SENNA [Concomitant]
     Active Substance: SENNA LEAF\SENNOSIDES\SENNOSIDES A AND B
  25. ROSUVASTATIN. [Concomitant]
     Active Substance: ROSUVASTATIN
  26. AMOXICILLIN. [Concomitant]
     Active Substance: AMOXICILLIN
  27. PREDNISONE. [Concomitant]
     Active Substance: PREDNISONE
  28. HYDROCODONE [Concomitant]
     Active Substance: HYDROCODONE
     Dosage: 2 TEASPOON TWICE DAILY
     Dates: start: 2014, end: 2019
  29. LEVOFLOXACIN. [Concomitant]
     Active Substance: LEVOFLOXACIN

REACTIONS (6)
  - Renal failure [Unknown]
  - End stage renal disease [Not Recovered/Not Resolved]
  - Renal injury [Unknown]
  - Chronic kidney disease [Unknown]
  - Nephrogenic anaemia [Unknown]
  - Rebound acid hypersecretion [Unknown]

NARRATIVE: CASE EVENT DATE: 2012
